FAERS Safety Report 23031629 (Version 1)
Quarter: 2023Q4

REPORT INFORMATION
  Report Type: Report from Study
  Country: US (occurrence: None)
  Receive Date: 20231005
  Receipt Date: 20231005
  Transmission Date: 20240110
  Serious: Yes (Hospitalization)
  Sender: FDA-Public Use
  Company Number: US-ROCHE-3432580

PATIENT
  Age: 70 Year
  Sex: Female
  Weight: 86 kg

DRUGS (20)
  1. TRASTUZUMAB [Suspect]
     Active Substance: TRASTUZUMAB
     Indication: Uterine cancer
     Dosage: LAST DOSE OF TRASTUZUMAB PRIOR TO EVENT ONSET DATE ON 06/MAY/2022.
     Route: 041
  2. TRASTUZUMAB [Suspect]
     Active Substance: TRASTUZUMAB
     Dosage: DAY 1 OF CYCLE 1
     Route: 041
     Dates: start: 20220506, end: 20220506
  3. TRASTUZUMAB [Suspect]
     Active Substance: TRASTUZUMAB
     Route: 041
  4. TRASTUZUMAB [Suspect]
     Active Substance: TRASTUZUMAB
     Route: 041
  5. TUCATINIB [Suspect]
     Active Substance: TUCATINIB
     Indication: Uterine cancer
     Dosage: THE SUBJECT RECEIVED THE LAST DOSE OF TUCATINIB PRIOR TO EVENT ONSET DATE ON 12/MAY/2022.
     Route: 048
     Dates: start: 20220506
  6. ASPIRIN [Concomitant]
     Active Substance: ASPIRIN
     Dates: start: 1997
  7. VITAMIN B12 [Concomitant]
     Active Substance: CYANOCOBALAMIN
  8. VITAMIN B1 [Concomitant]
     Active Substance: THIAMINE HYDROCHLORIDE
  9. VITAMIN B [Concomitant]
     Active Substance: VITAMIN B
  10. VITAMIN C [Concomitant]
     Active Substance: ASCORBIC ACID
  11. VITAMIN D [Concomitant]
     Active Substance: VITAMIN D NOS
  12. VITAMIN B12 [Concomitant]
     Active Substance: CYANOCOBALAMIN
  13. ROSUVASTATIN [Concomitant]
     Active Substance: ROSUVASTATIN
  14. TRULICITY [Concomitant]
     Active Substance: DULAGLUTIDE
  15. GABAPENTIN [Concomitant]
     Active Substance: GABAPENTIN
  16. SYNTHROID [Concomitant]
     Active Substance: LEVOTHYROXINE SODIUM
  17. MAGNESIUM OXIDE [Concomitant]
     Active Substance: MAGNESIUM OXIDE
  18. NEBIVOLOL [Concomitant]
     Active Substance: NEBIVOLOL
  19. COMPAZINE [Concomitant]
     Active Substance: PROCHLORPERAZINE MALEATE
  20. IMODIUM [Concomitant]
     Active Substance: LOPERAMIDE HYDROCHLORIDE

REACTIONS (1)
  - Acute kidney injury [Recovered/Resolved]

NARRATIVE: CASE EVENT DATE: 20220513
